FAERS Safety Report 9614310 (Version 1)
Quarter: 2013Q4

REPORT INFORMATION
  Report Type: Report from Study
  Country: CA (occurrence: CA)
  Receive Date: 20131011
  Receipt Date: 20131011
  Transmission Date: 20140711
  Serious: Yes (Hospitalization)
  Sender: FDA-Public Use
  Company Number: CA-JNJFOC-20131003164

PATIENT
  Age: 67 Year
  Sex: Female
  Weight: 89 kg

DRUGS (7)
  1. REMICADE [Suspect]
     Indication: RHEUMATOID ARTHRITIS
     Route: 042
     Dates: start: 20081121
  2. METHOTREXATE [Concomitant]
     Route: 065
  3. FOLIC ACID [Concomitant]
     Route: 065
  4. SYNTHROID [Concomitant]
     Route: 065
  5. LANOXIN [Concomitant]
     Route: 065
  6. DILTIAZEM [Concomitant]
     Route: 065
  7. VITAMIN B12 [Concomitant]
     Route: 065

REACTIONS (1)
  - Atrial fibrillation [Recovered/Resolved]
